FAERS Safety Report 9485656 (Version 4)
Quarter: 2014Q1

REPORT INFORMATION
  Report Type: Spontaneous
  Country: JP (occurrence: JP)
  Receive Date: 20130829
  Receipt Date: 20140220
  Transmission Date: 20141002
  Serious: Yes (Life-Threatening, Hospitalization)
  Sender: FDA-Public Use
  Company Number: JP-BRISTOL-MYERS SQUIBB COMPANY-19219948

PATIENT
  Age: 57 Year
  Sex: Male
  Weight: 115 kg

DRUGS (23)
  1. SPIRONOLACTONE [Concomitant]
     Indication: HYPERTENSION
     Route: 048
     Dates: end: 20130817
  2. METGLUCO [Concomitant]
     Indication: DIABETES MELLITUS
     Route: 048
     Dates: end: 20130817
  3. ACTOS [Concomitant]
     Indication: DIABETES MELLITUS
     Route: 048
     Dates: end: 20130817
  4. LIVALO [Concomitant]
     Indication: DYSLIPIDAEMIA
     Route: 048
     Dates: end: 20130817
  5. URINORM [Concomitant]
     Indication: HYPERURICAEMIA
     Route: 048
     Dates: end: 20130817
  6. HALCION [Concomitant]
     Indication: INSOMNIA
     Route: 048
  7. GASTER D [Concomitant]
     Indication: GASTRITIS
     Route: 048
     Dates: start: 20130816, end: 20130817
  8. MUCOSTA [Concomitant]
     Indication: GASTRITIS
     Route: 048
     Dates: start: 20130816, end: 20130817
  9. MIYA-BM [Concomitant]
     Indication: ENTEROCOLITIS
     Route: 048
     Dates: start: 20130816, end: 20130817
  10. TANNALBIN [Concomitant]
     Indication: ENTEROCOLITIS
     Route: 048
     Dates: start: 20130816, end: 20130817
  11. PRIMPERAN [Concomitant]
     Indication: NAUSEA
     Route: 048
     Dates: start: 20130816, end: 20130817
  12. LOPEMIN [Concomitant]
     Indication: DIARRHOEA
     Route: 048
     Dates: start: 20130816, end: 20130817
  13. HARNAL [Concomitant]
     Indication: BENIGN PROSTATIC HYPERPLASIA
     Route: 048
     Dates: end: 20130817
  14. IMIDAFENACIN [Concomitant]
     Indication: BENIGN PROSTATIC HYPERPLASIA
     Route: 048
     Dates: end: 20130817
  15. MUCODYNE [Concomitant]
     Indication: BRONCHITIS CHRONIC
     Route: 048
     Dates: end: 20130817
  16. LYRICA [Concomitant]
     Indication: NEUROPATHY PERIPHERAL
     Route: 048
     Dates: end: 20130817
  17. ALLEGRA [Concomitant]
     Route: 048
     Dates: end: 20130817
  18. BYDUREON [Suspect]
     Indication: DIABETES MELLITUS
     Route: 058
     Dates: start: 201305, end: 20130817
  19. OLMETEC [Suspect]
     Indication: HYPERTENSION
     Route: 048
     Dates: end: 20130817
  20. SOLETON [Suspect]
     Indication: NEUROPATHY PERIPHERAL
     Route: 048
     Dates: end: 20130817
  21. AMLODIPINE [Concomitant]
     Indication: HYPERTENSION
     Dosage: 2.5MG
     Route: 048
     Dates: end: 20130817
  22. CELIPROLOL HCL [Concomitant]
     Indication: HYPERTENSION
     Route: 048
     Dates: end: 20130817
  23. DOXAZOSIN [Concomitant]
     Indication: HYPERTENSION
     Route: 048
     Dates: end: 20130817

REACTIONS (5)
  - Dehydration [Recovered/Resolved]
  - Prerenal failure [Recovered/Resolved]
  - Vomiting [Recovered/Resolved]
  - Diarrhoea [Recovered/Resolved]
  - Enterocolitis [Recovered/Resolved]
